FAERS Safety Report 24663181 (Version 1)
Quarter: 2024Q4

REPORT INFORMATION
  Report Type: Spontaneous
  Country: US (occurrence: US)
  Receive Date: 20241126
  Receipt Date: 20241126
  Transmission Date: 20250114
  Serious: No
  Sender: CHATTEM
  Company Number: US-OPELLA-2024OHG038902

PATIENT
  Sex: Male

DRUGS (1)
  1. ALLEGRA D-12 HOUR [Suspect]
     Active Substance: FEXOFENADINE HYDROCHLORIDE\PSEUDOEPHEDRINE HYDROCHLORIDE
     Indication: Rhinorrhoea
     Dosage: STRENGTH/UNITS: 60 MG+120 MG

REACTIONS (5)
  - Testis discomfort [Unknown]
  - Swelling face [Unknown]
  - Lip swelling [Unknown]
  - Enlarged uvula [Unknown]
  - Pruritus [Unknown]
